FAERS Safety Report 19479109 (Version 1)
Quarter: 2021Q3

REPORT INFORMATION
  Report Type: Spontaneous
  Country: US (occurrence: US)
  Receive Date: 20210701
  Receipt Date: 20210701
  Transmission Date: 20211014
  Serious: No
  Sender: FDA-Public Use
  Company Number: US-JNJFOC-20210645499

PATIENT
  Sex: Male

DRUGS (1)
  1. CHILDRENS ZYRTEC [Suspect]
     Active Substance: CETIRIZINE HYDROCHLORIDE
     Indication: PRODUCT USED FOR UNKNOWN INDICATION
     Dosage: 2.5ML EACH TIME, BUT 7.5 ML THIS MORNING?DATE OF LAST ADMIN: 18?JUN?2021
     Route: 048

REACTIONS (1)
  - Wrong product administered [Unknown]

NARRATIVE: CASE EVENT DATE: 20210618
